FAERS Safety Report 13538508 (Version 2)
Quarter: 2017Q3

REPORT INFORMATION
  Report Type: Report from Study
  Country: CA (occurrence: CA)
  Receive Date: 20170512
  Receipt Date: 20170921
  Transmission Date: 20171127
  Serious: Yes (Hospitalization)
  Sender: FDA-Public Use
  Company Number: CA-ROCHE-1931759

PATIENT
  Age: 81 Year
  Sex: Female

DRUGS (9)
  1. ACTEMRA [Suspect]
     Active Substance: TOCILIZUMAB
     Indication: POLYMYALGIA RHEUMATICA
     Dosage: WEIGHT X 8MG/KG
     Route: 042
     Dates: start: 20170424
  2. ACTEMRA [Suspect]
     Active Substance: TOCILIZUMAB
     Indication: TEMPORAL ARTERITIS
     Dosage: WEIGHT X 4MG/KG
     Route: 042
     Dates: start: 20170523
  3. ACTEMRA [Suspect]
     Active Substance: TOCILIZUMAB
     Dosage: WEIGHT X 4MG/KG
     Route: 042
     Dates: start: 20170721
  4. ATENOLOL. [Concomitant]
     Active Substance: ATENOLOL
  5. ACTEMRA [Suspect]
     Active Substance: TOCILIZUMAB
     Dosage: WEIGHT X 4MG/KG
     Route: 042
     Dates: start: 20170817
  6. ACTEMRA [Suspect]
     Active Substance: TOCILIZUMAB
     Dosage: WEIGHT X 4MG/KG
     Route: 042
     Dates: start: 20170620
  7. ACTEMRA [Suspect]
     Active Substance: TOCILIZUMAB
     Dosage: WEIGHT X 4MG/KG
     Route: 042
     Dates: start: 20170914
  8. COSOPT [Concomitant]
     Active Substance: DORZOLAMIDE HYDROCHLORIDE\TIMOLOL MALEATE
  9. PREDNISONE. [Concomitant]
     Active Substance: PREDNISONE

REACTIONS (2)
  - Weight increased [Unknown]
  - Gastrointestinal haemorrhage [Unknown]

NARRATIVE: CASE EVENT DATE: 20170504
